FAERS Safety Report 9867173 (Version 1)
Quarter: 2014Q1

REPORT INFORMATION
  Report Type: Spontaneous
  Country: US (occurrence: US)
  Receive Date: 20140204
  Receipt Date: 20140204
  Transmission Date: 20141002
  Serious: No
  Sender: FDA-Public Use
  Company Number: US-009507513-1401USA013244

PATIENT
  Age: 65 Year
  Sex: Female

DRUGS (4)
  1. PROVENTIL [Suspect]
     Indication: ASTHMA
     Dosage: 1 STANDARD DOSE OF 6.7
     Route: 055
  2. PROVENTIL [Suspect]
     Dosage: 1 STANDARD DOSE OF 6.7
     Route: 055
     Dates: start: 20140122
  3. ASPIRIN [Suspect]
     Dosage: UNK
     Route: 048
  4. QVAR [Concomitant]
     Dosage: UNK

REACTIONS (5)
  - Drug ineffective [Unknown]
  - Product quality issue [Unknown]
  - Eye swelling [Unknown]
  - Abdominal discomfort [Unknown]
  - Atypical pneumonia [Unknown]
